FAERS Safety Report 10443282 (Version 1)
Quarter: 2014Q3

REPORT INFORMATION
  Report Type: Spontaneous
  Country: AR (occurrence: AR)
  Receive Date: 20140910
  Receipt Date: 20140910
  Transmission Date: 20150326
  Serious: Yes (Other)
  Sender: FDA-Public Use
  Company Number: AR-AMGEN-ARGSP2014068726

PATIENT
  Age: 40 Year
  Sex: Female

DRUGS (1)
  1. ENBREL [Suspect]
     Active Substance: ETANERCEPT
     Indication: RHEUMATOID ARTHRITIS
     Dosage: 50 MG, WEEKLY
     Route: 065
     Dates: start: 20130919

REACTIONS (10)
  - Red blood cell sedimentation rate increased [Not Recovered/Not Resolved]
  - Injury [Not Recovered/Not Resolved]
  - Muscle spasms [Recovered/Resolved]
  - Pyrexia [Not Recovered/Not Resolved]
  - Pain in extremity [Recovered/Resolved]
  - Mobility decreased [Recovered/Resolved]
  - Lymphatic disorder [Not Recovered/Not Resolved]
  - Laboratory test abnormal [Not Recovered/Not Resolved]
  - Erysipelas [Not Recovered/Not Resolved]
  - Abasia [Recovered/Resolved]

NARRATIVE: CASE EVENT DATE: 2013
